FAERS Safety Report 12479957 (Version 1)
Quarter: 2016Q2

REPORT INFORMATION
  Report Type: Spontaneous
  Country: US (occurrence: None)
  Receive Date: 20160617
  Receipt Date: 20160617
  Transmission Date: 20160815
  Serious: No
  Sender: FDA-Public Use
  Company Number: None

PATIENT
  Age: 49 Year
  Sex: Female

DRUGS (1)
  1. COPAXONE [Suspect]
     Active Substance: GLATIRAMER ACETATE
     Indication: MULTIPLE SCLEROSIS
     Route: 058
     Dates: start: 20151211

REACTIONS (6)
  - Musculoskeletal pain [None]
  - Chills [None]
  - Pain [None]
  - Tremor [None]
  - Pyrexia [None]
  - Neck pain [None]

NARRATIVE: CASE EVENT DATE: 20160614
